FAERS Safety Report 6807148-2 (Version None)
Quarter: 2010Q2

REPORT INFORMATION
  Report Type: 
  Country: None (occurrence: None)
  Receive Date: 20100629
  Receipt Date: 20080822
  Transmission Date: 20101027
  Serious: No
  Sender: FDA-Public Use
  Company Number: US-PFIZER INC-2008060558

PATIENT
  Sex: Male
  Weight: 118.2 kg

DRUGS (3)
  1. VIAGRA [Suspect]
     Indication: ERECTILE DYSFUNCTION
  2. ALTACE [Concomitant]
  3. LIPITOR [Concomitant]
     Indication: HYPERTENSION

REACTIONS (6)
  - ANXIETY [None]
  - CYANOPSIA [None]
  - DRUG INEFFECTIVE [None]
  - GLYCOSYLATED HAEMOGLOBIN INCREASED [None]
  - INCORRECT DOSE ADMINISTERED [None]
  - STRESS [None]
